FAERS Safety Report 8444768-6 (Version None)
Quarter: 2012Q2

REPORT INFORMATION
  Report Type: 
  Country: None (occurrence: None)
  Receive Date: 20120323
  Receipt Date: 20110818
  Transmission Date: 20120825
  Serious: Yes (Other)
  Sender: FDA-Public Use
  Company Number: 163-21880-11082295

PATIENT
  Age: 69 Year
  Weight: 67.1324 kg

DRUGS (2)
  1. MIRALAX [Concomitant]
  2. REVLIMID [Suspect]
     Indication: MULTIPLE MYELOMA
     Dosage: 25 MG, QD ON DAYS 1-21, PO
     Route: 048
     Dates: start: 20110411, end: 20110815

REACTIONS (1)
  - SWELLING FACE [None]
